FAERS Safety Report 15296154 (Version 1)
Quarter: 2018Q3

REPORT INFORMATION
  Report Type: Spontaneous
  Country: US (occurrence: US)
  Receive Date: 20180820
  Receipt Date: 20180820
  Transmission Date: 20181010
  Serious: Yes (Other)
  Sender: FDA-Public Use
  Company Number: US-BAYER-2018-149010

PATIENT
  Sex: Female

DRUGS (13)
  1. TEAR DROP [Concomitant]
     Active Substance: POLYVINYL ALCOHOL
  2. Q10 [Concomitant]
  3. GABAPENTIN. [Concomitant]
     Active Substance: GABAPENTIN
  4. MSM [Concomitant]
     Active Substance: DIMETHYL SULFONE
  5. NYSTATIN. [Concomitant]
     Active Substance: NYSTATIN
  6. FLONASE [Concomitant]
     Active Substance: FLUTICASONE PROPIONATE
  7. CITALOPRAM [Concomitant]
     Active Substance: CITALOPRAM HYDROBROMIDE
  8. BIOTIN [Concomitant]
     Active Substance: BIOTIN
  9. ESZOPICLONE. [Concomitant]
     Active Substance: ESZOPICLONE
  10. MELATONIN [Concomitant]
     Active Substance: MELATONIN
  11. BETASERON [Suspect]
     Active Substance: INTERFERON BETA-1B
     Indication: MULTIPLE SCLEROSIS
     Dosage: UNK
  12. DOCUSATE SODIUM. [Concomitant]
     Active Substance: DOCUSATE SODIUM
  13. CRANBERRY. [Concomitant]
     Active Substance: CRANBERRY

REACTIONS (2)
  - Depression [Recovered/Resolved]
  - Suicidal ideation [Recovered/Resolved]
